FAERS Safety Report 21641437 (Version 2)
Quarter: 2022Q4

REPORT INFORMATION
  Report Type: Spontaneous
  Country: US (occurrence: US)
  Receive Date: 20221125
  Receipt Date: 20221213
  Transmission Date: 20230113
  Serious: Yes (Other)
  Sender: FDA-Public Use
  Company Number: US-ORGANON-O2211USA001939

PATIENT
  Age: 42 Year
  Sex: Female
  Weight: 129.25 kg

DRUGS (2)
  1. NEXPLANON [Suspect]
     Active Substance: ETONOGESTREL
     Indication: Contraception
     Dosage: 1 IMPLANT OF 68 MG; UPPER LEFT ARM
     Route: 059
     Dates: start: 20210426
  2. NEXPLANON [Suspect]
     Active Substance: ETONOGESTREL
     Indication: Heavy menstrual bleeding

REACTIONS (6)
  - Device dislocation [Not Recovered/Not Resolved]
  - Fall [Unknown]
  - Amenorrhoea [Not Recovered/Not Resolved]
  - Device kink [Not Recovered/Not Resolved]
  - Device breakage [Not Recovered/Not Resolved]
  - Product use in unapproved indication [Unknown]

NARRATIVE: CASE EVENT DATE: 20210426
